FAERS Safety Report 4954451-7 (Version None)
Quarter: 2006Q1

REPORT INFORMATION
  Report Type: 
  Country: None (occurrence: None)
  Receive Date: 20060322
  Receipt Date: 20060309
  Transmission Date: 20060701
  Serious: Yes (Life-Threatening)
  Sender: FDA-Public Use
  Company Number: 223066

PATIENT
  Age: 36 Year
  Sex: Female
  Weight: 75 kg

DRUGS (6)
  1. MABTHERA(RITUXIMAB) CONC FOR SOLUTION FOR INFUSION [Suspect]
     Indication: CONNECTIVE TISSUE DISORDER
     Dosage: 700 MG, INTRAVENOUS
     Route: 042
     Dates: start: 20050720
  2. PREDNISONE [Concomitant]
  3. CALCIUM CARBONATE [Concomitant]
  4. BISOPROLOL [Concomitant]
  5. AMLODIPINE BESYLATE [Concomitant]
  6. ACENOCOUMAROL [Concomitant]

REACTIONS (1)
  - DEEP VEIN THROMBOSIS [None]
